FAERS Safety Report 5518597-7 (Version None)
Quarter: 2007Q4

REPORT INFORMATION
  Report Type: 
  Country: None (occurrence: None)
  Receive Date: 20071113
  Receipt Date: 20071101
  Transmission Date: 20080405
  Serious: Yes (Hospitalization)
  Sender: FDA-Public Use
  Company Number: GXKR2007GB09455

PATIENT
  Age: 62 Year
  Sex: Male

DRUGS (3)
  1. FLUOXETINE [Suspect]
     Indication: DEPRESSION
     Dosage: 40 MG, QD
  2. CODEINE PHOSPHATE AND ACETAMINOPHEN [Concomitant]
  3. THIAMINE (THIAMINE) [Concomitant]

REACTIONS (1)
  - RHABDOMYOLYSIS [None]
